FAERS Safety Report 16871102 (Version 3)
Quarter: 2020Q1

REPORT INFORMATION
  Report Type: Spontaneous
  Country: US (occurrence: US)
  Receive Date: 20190930
  Receipt Date: 20200113
  Transmission Date: 20200409
  Serious: Yes (Hospitalization, Other)
  Sender: FDA-Public Use
  Company Number: US-B.I. PHARMACEUTICALS,INC./RIDGEFIELD-2019-BI-104424

PATIENT
  Sex: Male
  Weight: 131.81 kg

DRUGS (36)
  1. COREG [Concomitant]
     Active Substance: CARVEDILOL
     Indication: ATRIAL FIBRILLATION
     Route: 048
     Dates: start: 20171129
  2. LISINOPRIL [LISINOPRIL DIHYDRATE] [Concomitant]
     Route: 048
  3. JARDIANCE [Suspect]
     Active Substance: EMPAGLIFLOZIN
     Indication: TYPE 2 DIABETES MELLITUS
     Route: 048
     Dates: start: 20170828
  4. JARDIANCE [Suspect]
     Active Substance: EMPAGLIFLOZIN
     Indication: DIABETES MELLITUS INADEQUATE CONTROL
  5. NOVOLOG [Concomitant]
     Active Substance: INSULIN ASPART
     Dosage: FORM STRENGTH: 100 UNIT/ML SUBQ INSULIN PEN; USE 3X DAILY. AVERAGE DAILY DOSE 40 UNITS.
     Route: 058
     Dates: start: 20161202
  6. REGLAN [Concomitant]
     Active Substance: METOCLOPRAMIDE HYDROCHLORIDE
     Indication: PRODUCT USED FOR UNKNOWN INDICATION
     Dosage: TAKE TWO TABLETS BY MOUTH 4 TIMES DAILY (BEFORE MEAL(S) AND NIGHTLY)
     Route: 048
     Dates: start: 20170301
  7. COLLAGENASE SANTYL [Concomitant]
     Active Substance: COLLAGENASE CLOSTRIDIUM HISTOLYTICUM
     Indication: PRODUCT USED FOR UNKNOWN INDICATION
     Dosage: APPLY TOPICALLY DAILY
     Route: 061
     Dates: start: 20171129, end: 20171209
  8. LASIX [Concomitant]
     Active Substance: FUROSEMIDE
     Dosage: QTY: 30
     Route: 048
  9. NORCO [Concomitant]
     Active Substance: ACETAMINOPHEN\HYDROCODONE BITARTRATE
     Indication: PAIN
     Dosage: 5-325MG TAB QTY: 60; TAKE TWO TABLETS BY MOUTH EVERY 12 HOURS AS NEEDED MUST LAST 30 DAYS
     Route: 048
  10. NOVOLOG [Concomitant]
     Active Substance: INSULIN ASPART
     Indication: DIABETES MELLITUS INADEQUATE CONTROL
     Dosage: 100UNIT/ML, QTY:1; INJECT 10 UNITS SUBCUTANEOUSLY THREE TIMES DAILY BEFORE MEAL(S)
     Route: 058
  11. PROTONIX [Concomitant]
     Active Substance: PANTOPRAZOLE SODIUM
     Indication: GASTROOESOPHAGEAL REFLUX DISEASE
     Dosage: TABLET, DELAYED RELEASE (E.C.)
     Route: 048
     Dates: start: 20171129
  12. COUMADIN [Concomitant]
     Active Substance: WARFARIN SODIUM
     Indication: ATRIAL FIBRILLATION
     Dosage: TITRATE TO MAINTAIN THERAPEUTIC INR. 1.25MG ON SUN,TUES,THURS THEN 2.5MG ALL OTHER DAYS OF THE WEEK
     Route: 048
     Dates: start: 20171129
  13. LIRAGLUTIDE [Concomitant]
     Active Substance: LIRAGLUTIDE
     Indication: PRODUCT USED FOR UNKNOWN INDICATION
     Route: 065
  14. VITAMIN K [CALCIUM PHOSPHATE DIBASIC;PHYTOMENADIONE] [Concomitant]
     Indication: ATRIAL FIBRILLATION
     Route: 065
  15. JARDIANCE [Suspect]
     Active Substance: EMPAGLIFLOZIN
     Indication: DRUG THERAPY
  16. JARDIANCE [Suspect]
     Active Substance: EMPAGLIFLOZIN
     Indication: INFECTION
  17. NOVOLOG [Concomitant]
     Active Substance: INSULIN ASPART
     Indication: INFECTION
     Dosage: 100UNIT/ML, QTY:15; INJECT 15-20 UNITS SUBCUTANEOUSLY THREE TIMES DAILY BEFORE MEAL(S)
     Route: 058
  18. CIPRO [Concomitant]
     Active Substance: CIPROFLOXACIN HYDROCHLORIDE
     Indication: PRODUCT USED FOR UNKNOWN INDICATION
     Route: 048
     Dates: start: 20171129, end: 20171209
  19. COREG [Concomitant]
     Active Substance: CARVEDILOL
     Indication: HYPERTENSION
     Route: 048
  20. LASIX [Concomitant]
     Active Substance: FUROSEMIDE
     Indication: PRODUCT USED FOR UNKNOWN INDICATION
     Route: 048
     Dates: start: 20171129
  21. NEURONTIN [Concomitant]
     Active Substance: GABAPENTIN
     Indication: DIABETIC NEUROPATHY
     Dosage: TAKE THREE CAPSULES BY MOUTH THREE TIMES DAILY
     Route: 048
     Dates: start: 20171129
  22. TOUJEO [Concomitant]
     Active Substance: INSULIN GLARGINE
     Indication: PRODUCT USED FOR UNKNOWN INDICATION
     Dosage: 300IU/ML , QTY:6; INJECT 70 UNITS SUBCUTANEOUSLY EVERY 24 HOURS
     Route: 058
  23. FLAGYL [Concomitant]
     Active Substance: METRONIDAZOLE\METRONIDAZOLE HYDROCHLORIDE
     Indication: PRODUCT USED FOR UNKNOWN INDICATION
     Route: 048
     Dates: start: 20171129
  24. DULCOLAX (BISACODYL) [Concomitant]
     Active Substance: BISACODYL
     Indication: PRODUCT USED FOR UNKNOWN INDICATION
     Route: 048
  25. LOVENOX [Concomitant]
     Active Substance: ENOXAPARIN SODIUM
     Indication: PRODUCT USED FOR UNKNOWN INDICATION
     Dosage: FORM STRENGTH: 120 MG/0.8 ML SUBQ SYRINGE (INJECT UNDER THE SKIN)
     Route: 058
     Dates: start: 20171002
  26. NORCO [Concomitant]
     Active Substance: ACETAMINOPHEN\HYDROCODONE BITARTRATE
     Dosage: FORM STRENGTH: 5-325 MG; TAKE 1 TAB 2 TIMES DAILY AS NEEDED (TAKE AS NEEDED FOR PAIN).
     Route: 048
  27. LISINOPRIL [LISINOPRIL DIHYDRATE] [Concomitant]
     Indication: CHRONIC LEFT VENTRICULAR FAILURE
     Route: 048
     Dates: start: 20171129
  28. ASPIRIN EC [Concomitant]
     Active Substance: ASPIRIN
     Indication: CORONARY ARTERY DISEASE
     Dosage: TABLET, DELAYED RELEASE
     Route: 048
     Dates: start: 20170823
  29. TOUJEO [Concomitant]
     Active Substance: INSULIN GLARGINE
     Dosage: 300 UNIT/ML (1.5ML) SUBQ INSULIN PEN
     Route: 058
     Dates: start: 20170828
  30. LISINOPRIL [LISINOPRIL DIHYDRATE] [Concomitant]
     Indication: HYPERTENSION
     Route: 048
  31. ZYVOX [Concomitant]
     Active Substance: LINEZOLID
     Indication: PRODUCT USED FOR UNKNOWN INDICATION
     Route: 048
  32. LIPITOR [Concomitant]
     Active Substance: ATORVASTATIN CALCIUM
     Indication: CORONARY ARTERY DISEASE
     Dosage: 90 TAB
     Route: 048
     Dates: start: 20171129
  33. IMDUR [Concomitant]
     Active Substance: ISOSORBIDE MONONITRATE
     Dosage: ER; QTY: 30
     Route: 048
  34. COREG [Concomitant]
     Active Substance: CARVEDILOL
     Indication: CHRONIC LEFT VENTRICULAR FAILURE
  35. TOUJEO [Concomitant]
     Active Substance: INSULIN GLARGINE
     Dosage: 100UNIT/ML, QTY:15; INJECT 15-20 UNITS SUBCUTANEOUSLY THREE TIMES DAILY BEFORE MEAL(S)
     Route: 058
  36. IMDUR [Concomitant]
     Active Substance: ISOSORBIDE MONONITRATE
     Indication: CORONARY ARTERY DISEASE
     Route: 048

REACTIONS (3)
  - Cellulitis [Unknown]
  - Fournier^s gangrene [Unknown]
  - Perirectal abscess [Unknown]
